FAERS Safety Report 9259241 (Version 4)
Quarter: 2019Q1

REPORT INFORMATION
  Report Type: Spontaneous
  Country: FR (occurrence: FR)
  Receive Date: 20130426
  Receipt Date: 20190301
  Transmission Date: 20190418
  Serious: Yes (Death, Life-Threatening, Hospitalization, Other)
  Sender: FDA-Public Use
  Company Number: FR-ASTRAZENECA-2013SE28237

PATIENT
  Age: 14324 Day
  Sex: Female
  Weight: 79 kg

DRUGS (23)
  1. CYMEVAN [Suspect]
     Active Substance: GANCICLOVIR
     Indication: CYTOMEGALOVIRUS INFECTION
     Route: 042
     Dates: start: 20130330
  2. ZELITREX [Concomitant]
     Active Substance: VALACYCLOVIR HYDROCHLORIDE
     Route: 048
  3. CANCIDAS [Suspect]
     Active Substance: CASPOFUNGIN ACETATE
     Indication: GASTROINTESTINAL CANDIDIASIS
     Route: 065
     Dates: start: 20130328
  4. SPASFON [Concomitant]
  5. DEFIBROTIDE [Concomitant]
     Active Substance: DEFIBROTIDE (BOVINE)
  6. MOPRAL [Concomitant]
     Active Substance: OMEPRAZOLE
  7. CELLCEPT [Suspect]
     Active Substance: MYCOPHENOLATE MOFETIL\MYCOPHENOLATE MOFETIL HYDROCHLORIDE
     Indication: GRAFT VERSUS HOST DISEASE
     Route: 042
     Dates: start: 20130320
  8. TAZOCILLINE [Suspect]
     Active Substance: PIPERACILLIN SODIUM\TAZOBACTAM SODIUM
     Indication: CYSTITIS ESCHERICHIA
     Route: 042
     Dates: start: 20130212, end: 20130403
  9. SOLIRIS [Suspect]
     Active Substance: ECULIZUMAB
     Indication: HAEMOLYTIC URAEMIC SYNDROME
     Route: 041
     Dates: start: 20130327
  10. NOXAFIL [Suspect]
     Active Substance: POSACONAZOLE
     Indication: GASTROINTESTINAL CANDIDIASIS
     Route: 048
     Dates: start: 20130314, end: 20130328
  11. CICLOSPORIN [Concomitant]
     Active Substance: CYCLOSPORINE
     Dates: end: 20130320
  12. STILNOX [Concomitant]
     Active Substance: ZOLPIDEM TARTRATE
  13. PROCTOLOG [Concomitant]
     Active Substance: TRIMEBUTINE
  14. HEPARIN [Concomitant]
     Active Substance: HEPARIN SODIUM
  15. COLECALCIFEROL [Concomitant]
     Active Substance: CHOLECALCIFEROL
  16. DELURSAN [Concomitant]
     Active Substance: URSODIOL
  17. FOSCAVIR [Suspect]
     Active Substance: FOSCARNET SODIUM
     Indication: CYTOMEGALOVIRUS INFECTION
     Route: 065
     Dates: start: 20130319, end: 20130329
  18. SEROPRAM (CITALOPRAM HYDROBROMIDE) [Concomitant]
     Active Substance: CITALOPRAM HYDROBROMIDE
  19. HALDOL [Concomitant]
     Active Substance: HALOPERIDOL
  20. INEXIUM [Suspect]
     Active Substance: ESOMEPRAZOLE
     Indication: GASTROOESOPHAGEAL REFLUX DISEASE
     Route: 048
     Dates: start: 20130318, end: 20130401
  21. SOLU-MEDROL [Concomitant]
     Active Substance: METHYLPREDNISOLONE SODIUM SUCCINATE
     Dosage: 80 MG IN THE MORNING AND 40 MG IN THE EVENING
     Route: 048
  22. LASILIX [Concomitant]
     Active Substance: FUROSEMIDE
  23. CACIT D3 [Concomitant]
     Active Substance: CALCIUM\CHOLECALCIFEROL

REACTIONS (13)
  - Cerebral haemorrhage [Fatal]
  - Venoocclusive disease [Unknown]
  - Bacterial pyelonephritis [Unknown]
  - Toxic epidermal necrolysis [Unknown]
  - Cytomegalovirus infection [Unknown]
  - Graft versus host disease [Unknown]
  - Leukaemia recurrent [Unknown]
  - Sepsis [Unknown]
  - Haemolytic uraemic syndrome [Unknown]
  - Renal failure [Unknown]
  - Rash [Unknown]
  - Bone marrow failure [Fatal]
  - Coagulopathy [Unknown]

NARRATIVE: CASE EVENT DATE: 20130328
